FAERS Safety Report 8967998 (Version 1)
Quarter: 2012Q4

REPORT INFORMATION
  Report Type: Report from Study
  Country: TH (occurrence: TH)
  Receive Date: 20121217
  Receipt Date: 20121217
  Transmission Date: 20130627
  Serious: Yes (Hospitalization)
  Sender: FDA-Public Use
  Company Number: TH-PFIZER INC-2012309860

PATIENT
  Age: 21 Year
  Sex: Female
  Weight: 50.5 kg

DRUGS (15)
  1. METHYLPREDNISOLONE SODIUM SUCCINATE [Suspect]
     Dosage: UNK
     Route: 042
  2. PREDNISOLONE [Suspect]
     Dosage: 75 mg, 1x/day
     Route: 048
     Dates: start: 20081205
  3. PREDNISOLONE [Suspect]
     Dosage: UNK
     Route: 048
     Dates: start: 20090224, end: 20090623
  4. PREDNISOLONE [Suspect]
     Dosage: UNK
     Route: 048
     Dates: start: 20090625
  5. IMURAN [Suspect]
     Indication: LUPUS NEPHRITIS
     Dosage: 100 mg, 1x/day
     Route: 048
     Dates: start: 20090410, end: 20090623
  6. IMURAN [Suspect]
     Dosage: 100 mg, 1x/day
     Route: 048
     Dates: start: 20090625, end: 20090816
  7. IMURAN [Suspect]
     Dosage: 100 mg, 1x/day
     Route: 048
     Dates: start: 20090817
  8. PLACEBO [Suspect]
     Indication: LUPUS NEPHRITIS
     Dosage: UNK
     Route: 042
     Dates: start: 20081212
  9. PLACEBO [Suspect]
  10. BACTRIM [Concomitant]
     Dosage: 2 DF, UNK
     Dates: start: 20090224
  11. FOLIC ACID [Concomitant]
     Dosage: 3 mg, UNK
     Dates: start: 20061214
  12. CALCIUM CARBONATE [Concomitant]
     Dosage: UNIT: GM
     Dates: start: 20061214
  13. HYDROXYCHLOROQUINE [Concomitant]
     Dosage: 200 mg, UNK
     Dates: start: 20081211
  14. ENARIL [Concomitant]
     Dosage: 10 mg, UNK
     Dates: start: 20081008
  15. ACYCLOVIR [Concomitant]
     Dosage: 100 mg, UNK
     Dates: start: 20090224

REACTIONS (2)
  - Enteritis [Recovered/Resolved]
  - Gastroenteritis [Recovered/Resolved]
